FAERS Safety Report 11137676 (Version 2)
Quarter: 2015Q2

REPORT INFORMATION
  Report Type: Spontaneous
  Country: IT (occurrence: IT)
  Receive Date: 20150526
  Receipt Date: 20150529
  Transmission Date: 20150821
  Serious: Yes (Hospitalization)
  Sender: FDA-Public Use
  Company Number: IT-ASTRAZENECA-2015SE50696

PATIENT
  Age: 13190 Day
  Sex: Female

DRUGS (20)
  1. SEROQUEL [Suspect]
     Active Substance: QUETIAPINE FUMARATE
     Indication: DRUG ABUSE
     Route: 048
     Dates: start: 20150414, end: 20150414
  2. SEROQUEL [Suspect]
     Active Substance: QUETIAPINE FUMARATE
     Indication: DEPRESSION
     Route: 048
     Dates: start: 20150520
  3. SEROQUEL [Suspect]
     Active Substance: QUETIAPINE FUMARATE
     Indication: ANXIETY
     Route: 048
     Dates: start: 20150520
  4. TALOFEN [Suspect]
     Active Substance: PROMAZINE HYDROCHLORIDE
     Indication: ANXIETY
     Dosage: 4G/100ML ORAL DROPS, SOLUTION, 50 DROPS DAILY
     Route: 048
     Dates: start: 20150520
  5. SEROQUEL [Suspect]
     Active Substance: QUETIAPINE FUMARATE
     Indication: ANXIETY
     Route: 048
     Dates: start: 20150414, end: 20150414
  6. VALIUM [Suspect]
     Active Substance: DIAZEPAM
     Indication: INSOMNIA
     Dosage: 50 GTT, 5MG/ML ORAL DROPS, SOLUTION
     Route: 048
     Dates: start: 20150520
  7. VALIUM [Suspect]
     Active Substance: DIAZEPAM
     Indication: DRUG ABUSE
     Dosage: 50 GTT, 5MG/ML ORAL DROPS, SOLUTION
     Route: 048
     Dates: start: 20150414, end: 20150414
  8. VALIUM [Suspect]
     Active Substance: DIAZEPAM
     Indication: DRUG ABUSE
     Dosage: 50 GTT, 5MG/ML ORAL DROPS, SOLUTION
     Route: 048
     Dates: start: 20150520
  9. VALIUM [Suspect]
     Active Substance: DIAZEPAM
     Indication: ANXIETY
     Dosage: 50 GTT, 5MG/ML ORAL DROPS, SOLUTION
     Route: 048
     Dates: start: 20150520
  10. TALOFEN [Suspect]
     Active Substance: PROMAZINE HYDROCHLORIDE
     Indication: ANXIETY
     Dosage: 4G/100ML ORAL DROPS, SOLUTION,
     Route: 048
     Dates: start: 20150514, end: 20150514
  11. SEROQUEL [Suspect]
     Active Substance: QUETIAPINE FUMARATE
     Indication: DEPRESSION
     Route: 048
     Dates: start: 20150414, end: 20150414
  12. TALOFEN [Suspect]
     Active Substance: PROMAZINE HYDROCHLORIDE
     Indication: INSOMNIA
     Dosage: 4G/100ML ORAL DROPS, SOLUTION, 50 DROPS DAILY
     Route: 048
     Dates: start: 20150520
  13. SEROQUEL [Suspect]
     Active Substance: QUETIAPINE FUMARATE
     Indication: DRUG ABUSE
     Route: 048
     Dates: start: 20150520
  14. VALIUM [Suspect]
     Active Substance: DIAZEPAM
     Indication: INSOMNIA
     Dosage: 50 GTT, 5MG/ML ORAL DROPS, SOLUTION
     Route: 048
     Dates: start: 20150414, end: 20150414
  15. VALIUM [Suspect]
     Active Substance: DIAZEPAM
     Indication: ANXIETY
     Dosage: 50 GTT, 5MG/ML ORAL DROPS, SOLUTION
     Route: 048
     Dates: start: 20150414, end: 20150414
  16. TALOFEN [Suspect]
     Active Substance: PROMAZINE HYDROCHLORIDE
     Indication: DRUG ABUSE
     Dosage: 4G/100ML ORAL DROPS, SOLUTION,
     Route: 048
     Dates: start: 20150514, end: 20150514
  17. SEROQUEL [Suspect]
     Active Substance: QUETIAPINE FUMARATE
     Indication: INSOMNIA
     Route: 048
     Dates: start: 20150414, end: 20150414
  18. TALOFEN [Suspect]
     Active Substance: PROMAZINE HYDROCHLORIDE
     Indication: INSOMNIA
     Dosage: 4G/100ML ORAL DROPS, SOLUTION,
     Route: 048
     Dates: start: 20150514, end: 20150514
  19. SEROQUEL [Suspect]
     Active Substance: QUETIAPINE FUMARATE
     Indication: INSOMNIA
     Route: 048
     Dates: start: 20150520
  20. TALOFEN [Suspect]
     Active Substance: PROMAZINE HYDROCHLORIDE
     Indication: DRUG ABUSE
     Dosage: 4G/100ML ORAL DROPS, SOLUTION, 50 DROPS DAILY
     Route: 048
     Dates: start: 20150520

REACTIONS (2)
  - Drug abuse [Recovered/Resolved]
  - Sopor [Recovered/Resolved]

NARRATIVE: CASE EVENT DATE: 20150414
